FAERS Safety Report 4787485-6 (Version None)
Quarter: 2005Q4

REPORT INFORMATION
  Report Type: 
  Country: None (occurrence: None)
  Receive Date: 20051004
  Receipt Date: 20050922
  Transmission Date: 20060501
  Serious: Yes (Other)
  Sender: FDA-Public Use
  Company Number: US-SANOFI-SYNTHELABO-A03200503038

PATIENT

DRUGS (2)
  1. UROXATRAL [Suspect]
     Indication: DRUG USE FOR UNKNOWN INDICATION
     Dosage: UNK
     Route: 048
  2. MEDICATION NOS [Interacting]
     Dosage: UNK
     Route: 065

REACTIONS (2)
  - DRUG INTERACTION [None]
  - HAEMORRHAGE [None]
